FAERS Safety Report 7972850-6 (Version None)
Quarter: 2011Q4

REPORT INFORMATION
  Report Type: 
  Country: None (occurrence: None)
  Receive Date: 20111213
  Receipt Date: 20111207
  Transmission Date: 20120403
  Serious: Yes (Other)
  Sender: FDA-Public Use
  Company Number: BR-US-EMD SERONO, INC.-7064222

PATIENT
  Sex: Female

DRUGS (5)
  1. VTIAMIN D [Concomitant]
  2. AMYTRIL [Concomitant]
  3. ABLOK PLUS [Concomitant]
  4. ACETAMINOPHEN [Concomitant]
  5. REBIF [Suspect]
     Indication: RELAPSING-REMITTING MULTIPLE SCLEROSIS
     Dates: start: 20100828

REACTIONS (7)
  - UTERINE NEOPLASM [None]
  - PAIN [None]
  - LIVER FUNCTION TEST ABNORMAL [None]
  - OVARIAN NEOPLASM [None]
  - TENDONITIS [None]
  - BURSITIS [None]
  - ANXIETY [None]
